FAERS Safety Report 7993112-7 (Version None)
Quarter: 2011Q4

REPORT INFORMATION
  Report Type: 
  Country: None (occurrence: None)
  Receive Date: 20111219
  Receipt Date: 20110329
  Transmission Date: 20120403
  Serious: No
  Sender: FDA-Public Use
  Company Number: US-ASTRAZENECA-2011SE17925

PATIENT
  Age: 59 Year
  Sex: Female

DRUGS (5)
  1. CRESTOR [Suspect]
     Route: 048
  2. TRICOR [Concomitant]
     Indication: HYPERLIPIDAEMIA
  3. LYRICA [Concomitant]
     Indication: THYROID DISORDER
     Dates: start: 19910101
  4. MOTRIN [Concomitant]
     Indication: HEADACHE
     Dates: start: 20110101
  5. PLAVIX [Concomitant]
     Indication: ARTERIOSCLEROSIS
     Dates: start: 20050101

REACTIONS (3)
  - WEIGHT DECREASED [None]
  - SKIN DISCOLOURATION [None]
  - HEADACHE [None]
